FAERS Safety Report 13593503 (Version 1)
Quarter: 2017Q2

REPORT INFORMATION
  Report Type: Spontaneous
  Country: US (occurrence: US)
  Receive Date: 20170530
  Receipt Date: 20170530
  Transmission Date: 20170830
  Serious: No
  Sender: FDA-Public Use
  Company Number: US-TEVA-748862USA

PATIENT
  Age: 88 Year
  Sex: Female
  Weight: 51 kg

DRUGS (1)
  1. CLOPIDOGREL [Suspect]
     Active Substance: CLOPIDOGREL BISULFATE
     Route: 065
     Dates: start: 201608

REACTIONS (7)
  - Syncope [Unknown]
  - Fall [Unknown]
  - Limb injury [Unknown]
  - Visual impairment [Unknown]
  - Weight decreased [Unknown]
  - Constipation [Unknown]
  - Contusion [Unknown]
